FAERS Safety Report 6478664-0 (Version None)
Quarter: 2009Q4

REPORT INFORMATION
  Report Type: 
  Country: None (occurrence: None)
  Receive Date: 20091207
  Receipt Date: 20091126
  Transmission Date: 20100525
  Serious: Yes (Other)
  Sender: FDA-Public Use
  Company Number: IT-PFIZER INC-2009303340

PATIENT
  Age: 33 Year
  Sex: Female

DRUGS (8)
  1. ZELDOX [Suspect]
     Indication: PSYCHOTIC DISORDER
     Dosage: 120 MG DAILY
     Route: 048
     Dates: start: 20091012, end: 20091022
  2. ZYPREXA [Concomitant]
     Dosage: 3.75 MG
     Route: 048
  3. GABAPENTIN [Concomitant]
     Dosage: 1800 MG
     Route: 048
  4. LORAZEPAM [Concomitant]
     Dosage: 7.5 MG
     Route: 048
  5. NIAPRAZINE [Concomitant]
     Dosage: 30 MG
     Route: 048
  6. BECLOMETASON/FORMOTEROL [Concomitant]
     Dosage: 16 UG
     Route: 048
  7. AUGMENTIN [Concomitant]
     Dosage: 2 G
     Route: 048
  8. PARAFFIN SOFT [Concomitant]
     Dosage: 75 MG DAILY
     Route: 048

REACTIONS (1)
  - MUSCLE NECROSIS [None]
